FAERS Safety Report 7762925-9 (Version None)
Quarter: 2011Q3

REPORT INFORMATION
  Report Type: 
  Country: None (occurrence: None)
  Receive Date: 20110920
  Receipt Date: 20110912
  Transmission Date: 20111222
  Serious: Yes (Other)
  Sender: FDA-Public Use
  Company Number: PHHY2011BR81112

PATIENT
  Sex: Male
  Weight: 2.86 kg

DRUGS (1)
  1. OXACILLIN [Suspect]
     Indication: ANTIBIOTIC THERAPY

REACTIONS (1)
  - DRUG RESISTANCE [None]
